FAERS Safety Report 10581442 (Version 1)
Quarter: 2014Q4

REPORT INFORMATION
  Report Type: Spontaneous
  Country: None (occurrence: None)
  Receive Date: 20141112
  Receipt Date: 20141112
  Transmission Date: 20150529
  Serious: Yes (Disabling)
  Sender: FDA-Public Use
  Company Number: None

PATIENT
  Age: 24 Year
  Sex: Female
  Weight: 63.5 kg

DRUGS (1)
  1. LEVORA [Suspect]
     Active Substance: ETHINYL ESTRADIOL\LEVONORGESTREL
     Indication: POLYCYSTIC OVARIES
     Dosage: 1 PILL
     Route: 048
     Dates: start: 20120101, end: 20120801

REACTIONS (11)
  - Pain [None]
  - Posture abnormal [None]
  - Muscle disorder [None]
  - No therapeutic response [None]
  - Muscle tightness [None]
  - Muscle injury [None]
  - Gait disturbance [None]
  - Exercise tolerance decreased [None]
  - Muscular weakness [None]
  - Tendon injury [None]
  - Mobility decreased [None]

NARRATIVE: CASE EVENT DATE: 20120101
